FAERS Safety Report 8311155-0 (Version None)
Quarter: 2012Q2

REPORT INFORMATION
  Report Type: 
  Country: None (occurrence: None)
  Receive Date: 20120425
  Receipt Date: 20111128
  Transmission Date: 20120825
  Serious: No
  Sender: FDA-Public Use
  Company Number: US-MYLANLABS-2011S1023471

PATIENT
  Age: 66 Year
  Sex: Female

DRUGS (1)
  1. LORAZEPAM [Suspect]
     Indication: PANIC ATTACK
     Route: 048
     Dates: start: 20111103

REACTIONS (3)
  - PRURITUS [None]
  - BURNING SENSATION [None]
  - RASH [None]
